FAERS Safety Report 9053558 (Version 1)
Quarter: 2013Q1

REPORT INFORMATION
  Report Type: Report from Study
  Country: IN (occurrence: IN)
  Receive Date: 20130208
  Receipt Date: 20130208
  Transmission Date: 20140127
  Serious: Yes (Death, Hospitalization)
  Sender: FDA-Public Use
  Company Number: IN-009507513-1302IND001959

PATIENT
  Age: 25 Year
  Sex: Male

DRUGS (4)
  1. RALTEGRAVIR POTASSIUM [Suspect]
     Indication: HIV INFECTION
     Dosage: 800 MG
     Route: 048
     Dates: start: 20120924, end: 20121010
  2. LOPINAVIR (+) RITONAVIR [Suspect]
     Indication: HIV INFECTION
     Dosage: 1000 MG
     Route: 048
     Dates: start: 20120924, end: 20121010
  3. COBADEX (VITAMIN B (UNSPECIFIED)) [Concomitant]
     Indication: VITAMIN SUPPLEMENTATION
     Dosage: 1 TABLET
     Dates: start: 20080402, end: 20121019
  4. SULFAMETHOXAZOLE (+) TRIMETHOPRIM [Concomitant]
     Indication: ANTIFUNGAL PROPHYLAXIS
     Dosage: 960 MG
     Dates: start: 20080402, end: 20121019

REACTIONS (1)
  - Pancreatitis [Fatal]
